FAERS Safety Report 8151555-5 (Version None)
Quarter: 2012Q1

REPORT INFORMATION
  Report Type: 
  Country: None (occurrence: None)
  Receive Date: 20120220
  Receipt Date: 20120209
  Transmission Date: 20120608
  Serious: Yes (Death, Hospitalization)
  Sender: FDA-Public Use
  Company Number: AU-ROCHE-1041232

PATIENT
  Age: 76 Year
  Sex: Female

DRUGS (2)
  1. PRADAXA [Suspect]
     Indication: ATRIAL FIBRILLATION
  2. ACTIVASE [Suspect]
     Indication: THROMBOLYSIS

REACTIONS (3)
  - ISCHAEMIC STROKE [None]
  - HAEMORRHAGE INTRACRANIAL [None]
  - HAEMORRHAGE [None]
